FAERS Safety Report 22993786 (Version 5)
Quarter: 2024Q1

REPORT INFORMATION
  Report Type: Spontaneous
  Country: US (occurrence: US)
  Receive Date: 20230927
  Receipt Date: 20240311
  Transmission Date: 20240410
  Serious: No
  Sender: FDA-Public Use
  Company Number: US-BRISTOL-MYERS SQUIBB COMPANY-2023-137147

PATIENT
  Age: 67 Year
  Sex: Female
  Weight: 63.5 kg

DRUGS (2)
  1. REVLIMID [Suspect]
     Active Substance: LENALIDOMIDE
     Indication: Plasma cell myeloma
     Dosage: FREQ: 3WKSON,1WKOFF
     Route: 048
  2. REVLIMID [Suspect]
     Active Substance: LENALIDOMIDE
     Dosage: 3W, 1 W OFF
     Route: 048
     Dates: start: 20230801

REACTIONS (7)
  - Anaemia [Recovered/Resolved]
  - Ageusia [Not Recovered/Not Resolved]
  - Peripheral swelling [Unknown]
  - Immune system disorder [Unknown]
  - Irritability [Unknown]
  - Red blood cell count decreased [Unknown]
  - White blood cell count decreased [Unknown]
